FAERS Safety Report 10048570 (Version 2)
Quarter: 2014Q2

REPORT INFORMATION
  Report Type: Spontaneous
  Country: US (occurrence: US)
  Receive Date: 20140331
  Receipt Date: 20140402
  Transmission Date: 20141212
  Serious: Yes (Other)
  Sender: FDA-Public Use
  Company Number: US-TEVA-471686USA

PATIENT
  Sex: Female

DRUGS (1)
  1. DULOXETINE [Suspect]
     Indication: DEPRESSION

REACTIONS (15)
  - Drug withdrawal syndrome [Unknown]
  - Depression [Unknown]
  - Irritability [Unknown]
  - Aggression [Unknown]
  - Emotional disorder [Unknown]
  - Crying [Unknown]
  - Paraesthesia [Unknown]
  - Hearing impaired [Unknown]
  - Reading disorder [Unknown]
  - Insomnia [Unknown]
  - Abnormal dreams [Unknown]
  - Depressed mood [Unknown]
  - Therapeutic response changed [Unknown]
  - Product quality issue [Unknown]
  - Drug ineffective [Unknown]
